FAERS Safety Report 7756101-3 (Version None)
Quarter: 2011Q3

REPORT INFORMATION
  Report Type: 
  Country: None (occurrence: None)
  Receive Date: 20110916
  Receipt Date: 20110909
  Transmission Date: 20111222
  Serious: Yes (Other)
  Sender: FDA-Public Use
  Company Number: US-ABBOTT-11P-163-0850130-00

PATIENT
  Sex: Male
  Weight: 113.5 kg

DRUGS (6)
  1. PANTOPRAZOLE [Concomitant]
     Indication: GASTROINTESTINAL ULCER
  2. METFORMIN HCL [Concomitant]
     Indication: DIABETES MELLITUS
  3. SIMVASTATIN [Concomitant]
     Indication: HYPERLIPIDAEMIA
  4. GLIPIZIDE [Concomitant]
     Indication: DIABETES MELLITUS
  5. INSULIN [Concomitant]
     Indication: DIABETES MELLITUS
  6. TRILIPIX [Suspect]
     Indication: HYPERLIPIDAEMIA
     Dates: start: 20110816

REACTIONS (2)
  - PANCREATITIS CHRONIC [None]
  - CHEST PAIN [None]
